FAERS Safety Report 8576693-4 (Version None)
Quarter: 2012Q3

REPORT INFORMATION
  Report Type: 
  Country: None (occurrence: None)
  Receive Date: 20120807
  Receipt Date: 20110803
  Transmission Date: 20120928
  Serious: Yes (Hospitalization)
  Sender: FDA-Public Use
  Company Number: US-GLAXOSMITHKLINE-A0939982A

PATIENT
  Age: 39 Year
  Sex: Male
  Weight: 198.2 kg

DRUGS (7)
  1. DIOVAN [Concomitant]
  2. AVANDIA [Suspect]
     Indication: DIABETES MELLITUS
     Dosage: 4MG TWICE PER DAY
     Route: 048
     Dates: start: 20030101, end: 20100720
  3. GLUCOPHAGE [Concomitant]
  4. SINGULAIR [Concomitant]
  5. VYTORIN [Concomitant]
  6. ZANTAC [Concomitant]
  7. BEXTRA [Concomitant]

REACTIONS (3)
  - CORONARY ARTERY DISEASE [None]
  - CARDIAC FAILURE CONGESTIVE [None]
  - ACUTE CORONARY SYNDROME [None]
